FAERS Safety Report 5677025-1 (Version None)
Quarter: 2008Q1

REPORT INFORMATION
  Report Type: 
  Country: None (occurrence: None)
  Receive Date: 20080318
  Receipt Date: 20080303
  Transmission Date: 20080703
  Serious: Yes (Other)
  Sender: FDA-Public Use
  Company Number: 2008S1003742

PATIENT
  Age: 43 Year
  Sex: Female

DRUGS (5)
  1. DOXEPIN DURA              (DOXEPIN HYDROCHLORIDE) [Suspect]
     Indication: DRUG USE FOR UNKNOWN INDICATION
     Dosage: K25 MG, ORAL, 50 MG, ORAL
     Route: 048
  2. GABAPENTIN DURA            (GABAPENTIN) [Suspect]
  3. GABAPENTIN [Suspect]
     Dosage: 400 MG;
  4. ALCOHOL (NO. PREF. NAME) [Suspect]
  5. CYMBALTA [Suspect]
     Dosage: 60 MG;

REACTIONS (6)
  - BREATH ODOUR [None]
  - DISORIENTATION [None]
  - GASTROINTESTINAL SOUNDS ABNORMAL [None]
  - INTENTIONAL OVERDOSE [None]
  - SOMNOLENCE [None]
  - SUICIDE ATTEMPT [None]
